FAERS Safety Report 22878666 (Version 9)
Quarter: 2024Q1

REPORT INFORMATION
  Report Type: Report from Study
  Country: GB (occurrence: GB)
  Receive Date: 20230829
  Receipt Date: 20240331
  Transmission Date: 20240410
  Serious: Yes (Death, Hospitalization, Other)
  Sender: FDA-Public Use
  Company Number: GB-CELLTRION INC.-2023GB016915

PATIENT

DRUGS (27)
  1. BEVACIZUMAB [Suspect]
     Active Substance: BEVACIZUMAB
     Indication: Hepatocellular carcinoma
     Dosage: 1200 MG
     Route: 065
     Dates: start: 20230111
  2. ATEZOLIZUMAB [Suspect]
     Active Substance: ATEZOLIZUMAB
     Indication: Hepatocellular carcinoma
     Dosage: ON 17/MAY/2023, HE RECEIVED MOST RECENT DOSE OF STUDY DRUG PRIOR TO AE AND SAE WAS 1200 MG;
     Route: 041
     Dates: start: 20230111
  3. BUDESONIDE\FORMOTEROL FUMARATE DIHYDRATE [Concomitant]
     Active Substance: BUDESONIDE\FORMOTEROL FUMARATE DIHYDRATE
     Dosage: 200MCG+6MCG; EVERY 0.5 DAY
     Dates: start: 1993
  4. CANDESARTAN [Concomitant]
     Active Substance: CANDESARTAN
     Indication: Sepsis
     Dosage: 16 MG, 1 DAY
     Dates: start: 20230118, end: 20230617
  5. CANDESARTAN [Concomitant]
     Active Substance: CANDESARTAN
     Dosage: 8 MG, QD
     Dates: start: 20230705, end: 20240307
  6. CARVEDILOL [Concomitant]
     Active Substance: CARVEDILOL
     Dosage: 6.25 MG, 0.5 DAY
     Dates: start: 20211124, end: 20230617
  7. HYDROCORTISONE [Concomitant]
     Active Substance: HYDROCORTISONE
     Dosage: 10MG AM, 5MG 12PM , 5MG 5PM;
     Dates: start: 20230222, end: 20230617
  8. HYDROCORTISONE [Concomitant]
     Active Substance: HYDROCORTISONE
     Dosage: 10MG AM, 5MG 12PM, 5MG 5PM;
     Dates: start: 20230701, end: 20230817
  9. HYDROCORTISONE [Concomitant]
     Active Substance: HYDROCORTISONE
     Dosage: 7.5MG PO AM, OD 5MG PO 12PM OD 5MG PO 5PM, OD;
     Dates: start: 20231206, end: 20231219
  10. HYDROCORTISONE [Concomitant]
     Active Substance: HYDROCORTISONE
     Dosage: 20MG PO AM OD, 10MG PO 12PM OD, 10MG PO OD
     Dates: start: 20230626, end: 20230630
  11. HYDROCORTISONE [Concomitant]
     Active Substance: HYDROCORTISONE
     Dosage: 10MG AM, 5MG 12PM , 5MG 5PM;
     Dates: start: 20230827, end: 20231205
  12. HYDROCORTISONE [Concomitant]
     Active Substance: HYDROCORTISONE
     Dosage: 20MG OD AM PO, 10MG 12PM PO, 10MG PO OD;
     Dates: start: 20230818, end: 20231205
  13. HYDROCORTISONE [Concomitant]
     Active Substance: HYDROCORTISONE
     Dosage: 10MG PO AM, OD 5MG PO 12PM, OD 5MG PO 5PM, OD
     Dates: start: 20231220, end: 20240102
  14. HYDROCORTISONE [Concomitant]
     Active Substance: HYDROCORTISONE
     Dosage: 0.33 PER DAY
     Dates: start: 20230617, end: 20230625
  15. HYDROCORTISONE [Concomitant]
     Active Substance: HYDROCORTISONE
     Dosage: 7.5MG PO AM OD, 5MG PO 12PM OD, 5MG PO 5PM
     Dates: start: 20240103, end: 20240117
  16. OMEPRAZOLE [Concomitant]
     Active Substance: OMEPRAZOLE
     Dosage: 40 MG, EVERY 1 DAY
     Dates: start: 202204
  17. ALBUTEROL [Concomitant]
     Active Substance: ALBUTEROL
     Dosage: 100MCG; ;
     Dates: start: 1979, end: 20240307
  18. RENAPRO [Concomitant]
     Dosage: 60 MG
     Dates: start: 202211
  19. DALTEPARIN [Concomitant]
     Active Substance: DALTEPARIN
     Dosage: 1800 UNIT
     Dates: start: 20231219
  20. DOXYCYCLINE [Concomitant]
     Active Substance: DOXYCYCLINE
     Dosage: 100 MG, EVERY 1 DAY
     Dates: start: 20231220, end: 20231225
  21. MOMETASONE [Concomitant]
     Active Substance: MOMETASONE
     Dosage: EVERY 1 DAY
     Dates: start: 20231220
  22. PREDNISOLONE [Concomitant]
     Active Substance: PREDNISOLONE
     Dosage: 45 MG, EVERY 1 DAY
     Dates: start: 20240118, end: 20240123
  23. PREDNISOLONE [Concomitant]
     Active Substance: PREDNISOLONE
     Dosage: 60 MG, QD
     Dates: start: 20240124, end: 20240206
  24. PREDNISOLONE [Concomitant]
     Active Substance: PREDNISOLONE
     Dosage: 40 MG, QD
     Dates: start: 20240207
  25. SODIUM PHOSPHATE [Concomitant]
     Active Substance: SODIUM PHOSPHATE
     Dosage: 2 DF, EVERY 1 DAY
     Dates: start: 20240102, end: 20240105
  26. CLARITHROMYCIN [Concomitant]
     Active Substance: CLARITHROMYCIN
     Dosage: EVERY 0.5 DAY
     Dates: start: 20240227, end: 20240304
  27. AMOXICILLIN\CLAVULANATE POTASSIUM [Concomitant]
     Active Substance: AMOXICILLIN\CLAVULANATE POTASSIUM
     Dosage: EVERY 0.33 DAY
     Dates: start: 20240228, end: 20240306

REACTIONS (5)
  - Death [Fatal]
  - Oedema [Not Recovered/Not Resolved]
  - Acute kidney injury [Recovered/Resolved]
  - Sepsis [Recovered/Resolved]
  - Intentional product use issue [Unknown]

NARRATIVE: CASE EVENT DATE: 20230617
